FAERS Safety Report 20757826 (Version 1)
Quarter: 2022Q2

REPORT INFORMATION
  Report Type: Spontaneous
  Country: US (occurrence: None)
  Receive Date: 20220426
  Receipt Date: 20220426
  Transmission Date: 20220721
  Serious: Yes (Other)
  Sender: FDA-Public Use
  Company Number: None

PATIENT
  Age: 33 Year
  Sex: Male
  Weight: 113.85 kg

DRUGS (1)
  1. MORPHINE [Suspect]
     Active Substance: MORPHINE
     Indication: Pain
     Dosage: OTHER FREQUENCY : 28 DAYS;?
     Route: 048

REACTIONS (2)
  - Product dispensing error [None]
  - Therapy interrupted [None]

NARRATIVE: CASE EVENT DATE: 20220426
